FAERS Safety Report 6256217-7 (Version None)
Quarter: 2009Q3

REPORT INFORMATION
  Report Type: 
  Country: None (occurrence: None)
  Receive Date: 20090706
  Receipt Date: 20090602
  Transmission Date: 20100115
  Serious: No
  Sender: FDA-Public Use
  Company Number: US-BAYER-200922450NA

PATIENT
  Age: 56 Year
  Sex: Male

DRUGS (5)
  1. LEVITRA [Suspect]
     Indication: ERECTILE DYSFUNCTION
     Dosage: TOTAL DAILY DOSE: 10 MG  UNIT DOSE: 10 MG
     Route: 048
     Dates: start: 20090601
  2. WELLBUTRIN [Concomitant]
     Indication: DEPRESSION
     Dosage: TOTAL DAILY DOSE: 37.5 MG
     Route: 048
  3. LISINOPRIL [Concomitant]
     Indication: HYPERTENSION
     Dosage: 15 OR 20 MG
     Route: 048
  4. VITAMINS [Concomitant]
  5. MINERAL TAB [Concomitant]

REACTIONS (2)
  - ERECTILE DYSFUNCTION [None]
  - MENTAL DISORDER [None]
